FAERS Safety Report 21970296 (Version 1)
Quarter: 2023Q1

REPORT INFORMATION
  Report Type: Spontaneous
  Country: IT (occurrence: IT)
  Receive Date: 20230209
  Receipt Date: 20230209
  Transmission Date: 20230417
  Serious: Yes (Other)
  Sender: FDA-Public Use
  Company Number: IT-CELLTRION INC.-2021IT012898

PATIENT

DRUGS (4)
  1. TRASTUZUMAB [Suspect]
     Active Substance: TRASTUZUMAB
     Indication: Colorectal cancer metastatic
     Dosage: 2 MG/KG, QW
     Route: 042
  2. TRASTUZUMAB [Suspect]
     Active Substance: TRASTUZUMAB
     Indication: HER2 positive gastric cancer
     Dosage: 4 MG/KG (LOADING DOSE)
     Route: 042
  3. LAPATINIB [Suspect]
     Active Substance: LAPATINIB
     Indication: Colorectal cancer metastatic
     Dosage: 1000 MG, QD (IN 21 DAYS TREATMENT CYCLE)
     Route: 048
  4. LAPATINIB [Suspect]
     Active Substance: LAPATINIB
     Indication: HER2 positive gastric cancer
     Dosage: 1000 MILLIGRAM, QD
     Route: 048

REACTIONS (3)
  - Ejection fraction decreased [Recovering/Resolving]
  - Fatigue [Recovering/Resolving]
  - Off label use [Unknown]
